FAERS Safety Report 8351019 (Version 3)
Quarter: 2015Q1

REPORT INFORMATION
  Report Type: Report from Study
  Country: US (occurrence: US)
  Receive Date: 20120124
  Receipt Date: 20150209
  Transmission Date: 20150721
  Serious: Yes (Death)
  Sender: FDA-Public Use
  Company Number: US-ROCHE-1032866

PATIENT
  Age: 65 Year
  Sex: Female

DRUGS (6)
  1. TORADOL [Suspect]
     Active Substance: KETOROLAC TROMETHAMINE
     Indication: PRODUCT USED FOR UNKNOWN INDICATION
     Route: 065
  2. LUCENTIS [Suspect]
     Active Substance: RANIBIZUMAB
     Indication: DIABETIC RETINOPATHY
     Dosage: 10 MG/ML SOLUTION
     Route: 050
     Dates: start: 20101101
  3. LIDOCAINE GEL [Concomitant]
     Dosage: GEL
     Route: 065
  4. PROPARACAINE [Concomitant]
     Active Substance: PROPARACAINE
     Route: 065
  5. BETADINE [Concomitant]
     Active Substance: POVIDONE-IODINE
     Route: 065
  6. LUCENTIS [Suspect]
     Active Substance: RANIBIZUMAB
     Indication: DIABETIC RETINAL OEDEMA

REACTIONS (2)
  - Hypersensitivity [Unknown]
  - Death [Fatal]

NARRATIVE: CASE EVENT DATE: 20101103
